FAERS Safety Report 4410730-3 (Version None)
Quarter: 2004Q2

REPORT INFORMATION
  Report Type: 
  Country: None (occurrence: None)
  Receive Date: 20040630
  Receipt Date: 20040427
  Transmission Date: 20050107
  Serious: No
  Sender: FDA-Public Use
  Company Number: 04P-163-0258877-00

PATIENT
  Age: 77 Year
  Sex: Female
  Weight: 46.7205 kg

DRUGS (9)
  1. HUMIRA [Suspect]
     Indication: RHEUMATOID ARTHRITIS
     Dosage: 40 MG, 1 IN 2 WK, SUBCUTANEOUS
     Route: 058
     Dates: start: 20040330
  2. OXYCODONE HCL [Concomitant]
  3. QUINAPRIL HYDROCHLORIDE [Concomitant]
  4. INSULIN [Concomitant]
  5. GLIBENCLAMIDE [Concomitant]
  6. RALOXIFENE HCL [Concomitant]
  7. LORATADINE [Concomitant]
  8. BUMETANIDE [Concomitant]
  9. BETOPIC S [Concomitant]

REACTIONS (4)
  - ABDOMINAL PAIN UPPER [None]
  - LOOSE STOOLS [None]
  - RASH [None]
  - VISION BLURRED [None]
